FAERS Safety Report 13134561 (Version 1)
Quarter: 2017Q1

REPORT INFORMATION
  Report Type: Spontaneous
  Country: US (occurrence: US)
  Receive Date: 20170120
  Receipt Date: 20170120
  Transmission Date: 20170428
  Serious: No
  Sender: FDA-Public Use
  Company Number: US-LEHIGH_VALLEY-USA-POI0580201600114

PATIENT
  Age: 70 Year
  Sex: Female
  Weight: 68.1 kg

DRUGS (1)
  1. POTASSIUM CHLORIDE ORAL SOLUTION [Suspect]
     Active Substance: POTASSIUM CHLORIDE
     Indication: MINERAL SUPPLEMENTATION
     Dosage: 1 TABLESPOONFUL
     Dates: start: 20161015, end: 20161101

REACTIONS (2)
  - Eyelid oedema [Recovered/Resolved]
  - Hypersensitivity [Recovered/Resolved]

NARRATIVE: CASE EVENT DATE: 20161016
